FAERS Safety Report 4691948-1 (Version None)
Quarter: 2005Q2

REPORT INFORMATION
  Report Type: 
  Country: None (occurrence: None)
  Receive Date: 20050614
  Receipt Date: 20050526
  Transmission Date: 20051028
  Serious: Yes (Death)
  Sender: FDA-Public Use
  Company Number: AE-501-120

PATIENT
  Age: 84 Year
  Sex: Male

DRUGS (1)
  1. LIDODERM PATCH,              LIDOCAINE 5%, [Suspect]
     Indication: HERPES ZOSTER
     Route: 062
     Dates: start: 20050325

REACTIONS (1)
  - DRUG INEFFECTIVE [None]
